FAERS Safety Report 5913056-1 (Version None)
Quarter: 2008Q4

REPORT INFORMATION
  Report Type: 
  Country: None (occurrence: None)
  Receive Date: 20081008
  Receipt Date: 20081008
  Transmission Date: 20090506
  Serious: Yes (Life-Threatening, Hospitalization, Other)
  Sender: FDA-Public Use
  Company Number: None

PATIENT
  Age: 37 Year
  Sex: Female
  Weight: 155.1302 kg

DRUGS (8)
  1. HUMAN INSULIN (THEY PUT 18 UNITS MORE) [Suspect]
     Indication: BLOOD GLUCOSE INCREASED
     Dosage: 2 UNITS ONE TIME A DAY ARM
     Dates: start: 20080917, end: 20080922
  2. CARDURA [Suspect]
     Indication: HYPERTENSION
     Dosage: CARDURA 4MG DAILY P.O.
     Route: 048
  3. PLAQUENIL [Concomitant]
  4. TRENTAL [Concomitant]
  5. HIDROCHLOROTHIAZIDE [Concomitant]
  6. LYRICA [Concomitant]
  7. FLOVENT [Concomitant]
  8. ALBUTEROL + ATROVENT [Concomitant]

REACTIONS (2)
  - INCORRECT DOSE ADMINISTERED [None]
  - MEDICATION ERROR [None]
